FAERS Safety Report 20210548 (Version 1)
Quarter: 2021Q4

REPORT INFORMATION
  Report Type: Spontaneous
  Country: CN (occurrence: CN)
  Receive Date: 20211221
  Receipt Date: 20211221
  Transmission Date: 20220303
  Serious: Yes (Other)
  Sender: FDA-Public Use
  Company Number: CN-MLMSERVICE-20211207-3254322-1

PATIENT
  Age: 52 Year
  Sex: Male

DRUGS (11)
  1. DEXAMETHASONE [Suspect]
     Active Substance: DEXAMETHASONE
     Indication: Angioimmunoblastic T-cell lymphoma stage III
     Dosage: 15 MG DI-D5, EVERY 4 WEEKS
     Route: 065
     Dates: start: 2016
  2. DEXAMETHASONE [Suspect]
     Active Substance: DEXAMETHASONE
     Indication: Diffuse large B-cell lymphoma
  3. ETOPOSIDE [Suspect]
     Active Substance: ETOPOSIDE
     Indication: Angioimmunoblastic T-cell lymphoma stage III
     Dosage: 150 MG DI, EVERY 4 WEEKS
     Route: 065
     Dates: start: 2016
  4. ETOPOSIDE [Suspect]
     Active Substance: ETOPOSIDE
     Indication: Diffuse large B-cell lymphoma
  5. TUCIDINOSTAT [Suspect]
     Active Substance: TUCIDINOSTAT
     Indication: Angioimmunoblastic T-cell lymphoma stage III
     Dosage: 30 MG TWICE A WEEK
     Route: 065
     Dates: start: 2016
  6. TUCIDINOSTAT [Suspect]
     Active Substance: TUCIDINOSTAT
     Indication: Diffuse large B-cell lymphoma
  7. RITUXIMAB [Suspect]
     Active Substance: RITUXIMAB
     Indication: Diffuse large B-cell lymphoma
     Dosage: 375 MG/KG DI, EVERY 4 WEEKS
     Route: 065
     Dates: start: 2016
  8. RITUXIMAB [Suspect]
     Active Substance: RITUXIMAB
     Indication: Angioimmunoblastic T-cell lymphoma stage III
  9. CYCLOSPORINE [Concomitant]
     Active Substance: CYCLOSPORINE
     Indication: Angioimmunoblastic T-cell lymphoma stage III
  10. CYCLOSPORINE [Concomitant]
     Active Substance: CYCLOSPORINE
  11. PREDNISONE [Concomitant]
     Active Substance: PREDNISONE
     Indication: Angioimmunoblastic T-cell lymphoma stage III
     Route: 048

REACTIONS (1)
  - Neutrophil count decreased [Unknown]
